FAERS Safety Report 8443479-0 (Version None)
Quarter: 2012Q2

REPORT INFORMATION
  Report Type: 
  Country: None (occurrence: None)
  Receive Date: 20120618
  Receipt Date: 20120608
  Transmission Date: 20120825
  Serious: Yes (Hospitalization)
  Sender: FDA-Public Use
  Company Number: FR-JNJFOC-20120606512

PATIENT
  Age: 65 Year
  Sex: Male

DRUGS (4)
  1. DURAGESIC-100 [Suspect]
     Indication: DIABETIC NEUROPATHY
     Route: 062
  2. MORPHINE [Suspect]
     Indication: DIABETIC NEUROPATHY
     Route: 065
  3. INSTANYL [Suspect]
     Indication: DIABETIC NEUROPATHY
     Route: 045
  4. REMICADE [Concomitant]
     Indication: ANKYLOSING SPONDYLITIS
     Route: 065

REACTIONS (2)
  - PAIN THRESHOLD DECREASED [None]
  - CHOREOATHETOSIS [None]
